FAERS Safety Report 16366408 (Version 1)
Quarter: 2019Q2

REPORT INFORMATION
  Report Type: Spontaneous
  Country: CH (occurrence: CH)
  Receive Date: 20190529
  Receipt Date: 20190529
  Transmission Date: 20190711
  Serious: Yes (Other)
  Sender: FDA-Public Use
  Company Number: CH-TEVA-2019-CH-1056289

PATIENT
  Age: 59 Year
  Sex: Male

DRUGS (1)
  1. ESCITALOPRAM-MEPHA LACTAB 10MG [Suspect]
     Active Substance: ESCITALOPRAM OXALATE
     Dosage: 10 MILLIGRAM DAILY;
     Route: 065

REACTIONS (2)
  - Urinary retention [Unknown]
  - Benign prostatic hyperplasia [Unknown]
